FAERS Safety Report 23921352 (Version 1)
Quarter: 2024Q2

REPORT INFORMATION
  Report Type: Spontaneous
  Country: US (occurrence: US)
  Receive Date: 20240530
  Receipt Date: 20240530
  Transmission Date: 20240717
  Serious: Yes (Hospitalization)
  Sender: FDA-Public Use
  Company Number: US-DSJP-DSU-2024-123855

PATIENT
  Sex: Male

DRUGS (1)
  1. VANFLYTA [Suspect]
     Active Substance: QUIZARTINIB DIHYDROCHLORIDE
     Indication: Acute leukaemia
     Dosage: 35.4 MG, QD  (DAILY FOR 14 DAYS ON, 14 DAYS OFF)
     Route: 048
     Dates: start: 20240418

REACTIONS (2)
  - Gastrointestinal infection [Recovered/Resolved]
  - Irritable bowel syndrome [Recovered/Resolved]
